FAERS Safety Report 25291618 (Version 1)
Quarter: 2025Q2

REPORT INFORMATION
  Report Type: Spontaneous
  Country: US (occurrence: US)
  Receive Date: 20250510
  Receipt Date: 20250510
  Transmission Date: 20250717
  Serious: No
  Sender: SANOFI AVENTIS
  Company Number: US-SA-2025SA117244

PATIENT
  Age: 59 Year
  Sex: Male

DRUGS (1)
  1. DUPIXENT [Suspect]
     Active Substance: DUPILUMAB
     Indication: Nasal polyps
     Dosage: 300 MG, QOW
     Route: 058
     Dates: start: 202502

REACTIONS (6)
  - Injection site bruising [Unknown]
  - Initial insomnia [Unknown]
  - Sleep disorder [Unknown]
  - Rash erythematous [Recovering/Resolving]
  - Rash [Recovering/Resolving]
  - Therapeutic response delayed [Unknown]

NARRATIVE: CASE EVENT DATE: 20250101
